FAERS Safety Report 7646484-7 (Version None)
Quarter: 2011Q3

REPORT INFORMATION
  Report Type: 
  Country: None (occurrence: None)
  Receive Date: 20110801
  Receipt Date: 20110726
  Transmission Date: 20111222
  Serious: Yes (Other)
  Sender: FDA-Public Use
  Company Number: US-BAYER-2011-065233

PATIENT
  Sex: Female

DRUGS (1)
  1. MIRENA [Suspect]
     Dosage: 20 MCG/24HR, CONT
     Route: 015
     Dates: start: 20081101

REACTIONS (7)
  - VOMITING [None]
  - ASTHENIA [None]
  - DECREASED APPETITE [None]
  - MENORRHAGIA [None]
  - FEELING ABNORMAL [None]
  - DIZZINESS [None]
  - VAGINAL HAEMORRHAGE [None]
